FAERS Safety Report 21822151 (Version 1)
Quarter: 2023Q1

REPORT INFORMATION
  Report Type: Spontaneous
  Country: CN (occurrence: CN)
  Receive Date: 20230105
  Receipt Date: 20230105
  Transmission Date: 20230417
  Serious: Yes (Hospitalization, Other)
  Sender: FDA-Public Use
  Company Number: CN-SUN PHARMACEUTICAL INDUSTRIES LTD-2022R1-369497

PATIENT
  Sex: Female

DRUGS (8)
  1. METHOTREXATE [Suspect]
     Active Substance: METHOTREXATE
     Indication: Idiopathic inflammatory myopathy
     Dosage: UNK (10 MG QW)
     Route: 065
  2. METHOTREXATE [Suspect]
     Active Substance: METHOTREXATE
     Indication: Dermatomyositis
  3. CYCLOPHOSPHAMIDE [Suspect]
     Active Substance: CYCLOPHOSPHAMIDE
     Indication: Idiopathic inflammatory myopathy
     Dosage: 0.2 GRAM, DAILY
     Route: 065
  4. CYCLOPHOSPHAMIDE [Suspect]
     Active Substance: CYCLOPHOSPHAMIDE
     Indication: Dermatomyositis
  5. METHYLPREDNISOLONE [Concomitant]
     Active Substance: METHYLPREDNISOLONE
     Indication: Idiopathic inflammatory myopathy
     Dosage: 15 MILLIGRAM/KILOGRAM, DAILY (3 CONSECUTIVE DAYS PER CYCLE)
     Route: 065
  6. METHYLPREDNISOLONE [Concomitant]
     Active Substance: METHYLPREDNISOLONE
     Indication: Dermatomyositis
  7. PREDNISONE ACETATE [Concomitant]
     Active Substance: PREDNISONE ACETATE
     Indication: Idiopathic inflammatory myopathy
     Dosage: 2 MILLIGRAM/KILOGRAM, DAILY
     Route: 065
  8. PREDNISONE ACETATE [Concomitant]
     Active Substance: PREDNISONE ACETATE
     Indication: Dermatomyositis

REACTIONS (8)
  - Therapeutic response decreased [Unknown]
  - Condition aggravated [Unknown]
  - Oedema [Recovering/Resolving]
  - Dysphagia [Recovering/Resolving]
  - Choking [Recovering/Resolving]
  - Cough [Recovering/Resolving]
  - Asphyxia [Recovering/Resolving]
  - Myalgia [Recovering/Resolving]
